FAERS Safety Report 5104320-7 (Version None)
Quarter: 2006Q3

REPORT INFORMATION
  Report Type: 
  Country: None (occurrence: None)
  Receive Date: 20060912
  Receipt Date: 20060912
  Transmission Date: 20061208
  Serious: Yes (Other)
  Sender: FDA-Public Use
  Company Number: None

PATIENT
  Sex: Male

DRUGS (12)
  1. GABAPENTIN    900 MG [Suspect]
     Indication: NEUROPATHY
     Dosage: 900 MG   QID   PO
     Route: 048
  2. ALPRAZOLAM [Concomitant]
  3. FELODIPINE [Concomitant]
  4. FUROSEMIDE [Concomitant]
  5. GLIPIZIDE [Concomitant]
  6. LISINOPRIL [Concomitant]
  7. METOPROLOL [Concomitant]
  8. MINOXIDIL [Concomitant]
  9. NITROGLYCERIN [Concomitant]
  10. SIMVASTATIN [Concomitant]
  11. TIMOLOL MALEATE [Concomitant]
  12. TRAVOPROST [Concomitant]

REACTIONS (2)
  - HAEMODIALYSIS [None]
  - RENAL FAILURE ACUTE [None]
